FAERS Safety Report 17138817 (Version 1)
Quarter: 2019Q4

REPORT INFORMATION
  Report Type: Report from Study
  Country: US (occurrence: US)
  Receive Date: 20191211
  Receipt Date: 20191211
  Transmission Date: 20200122
  Serious: Yes (Hospitalization, Other)
  Sender: FDA-Public Use
  Company Number: US-ASTELLAS-2019US048918

PATIENT
  Sex: Male

DRUGS (1)
  1. ENZALUTAMIDE [Suspect]
     Active Substance: ENZALUTAMIDE
     Indication: PROSTATE CANCER
     Route: 048

REACTIONS (3)
  - Gastric haemorrhage [Not Recovered/Not Resolved]
  - Renal failure [Not Recovered/Not Resolved]
  - Haemorrhagic stroke [Not Recovered/Not Resolved]
